FAERS Safety Report 8564576-5 (Version None)
Quarter: 2012Q3

REPORT INFORMATION
  Report Type: 
  Country: None (occurrence: None)
  Receive Date: 20120803
  Receipt Date: 20120802
  Transmission Date: 20120928
  Serious: Yes (Other)
  Sender: FDA-Public Use
  Company Number: US-PFIZER INC-2012188204

PATIENT
  Sex: Male
  Weight: 79.365 kg

DRUGS (1)
  1. ZOLOFT [Suspect]
     Dosage: 50 MG, DAILY
     Dates: start: 20120701, end: 20120801

REACTIONS (4)
  - GAIT DISTURBANCE [None]
  - GENITAL BURNING SENSATION [None]
  - PENILE ERYTHEMA [None]
  - PENILE BLISTER [None]
